FAERS Safety Report 8127812-5 (Version None)
Quarter: 2012Q1

REPORT INFORMATION
  Report Type: 
  Country: None (occurrence: None)
  Receive Date: 20120210
  Receipt Date: 20120202
  Transmission Date: 20120608
  Serious: Yes (Hospitalization)
  Sender: FDA-Public Use
  Company Number: US-BAYER-2011-036566

PATIENT
  Age: 31 Year
  Sex: Female
  Weight: 97.052 kg

DRUGS (2)
  1. YAZ [Suspect]
     Indication: DYSFUNCTIONAL UTERINE BLEEDING
     Dosage: UNK
     Dates: start: 20080414, end: 20080511
  2. ORTHO TRI-CYCLEN [Concomitant]
     Dosage: UNK
     Dates: start: 20080101, end: 20080401

REACTIONS (16)
  - BALANCE DISORDER [None]
  - POST STROKE DEPRESSION [None]
  - HEADACHE [None]
  - HYPOAESTHESIA [None]
  - DYSARTHRIA [None]
  - EMOTIONAL DISORDER [None]
  - ANXIETY [None]
  - EMOTIONAL DISTRESS [None]
  - MEMORY IMPAIRMENT [None]
  - VISUAL FIELD DEFECT [None]
  - NEUROLOGICAL EXAMINATION ABNORMAL [None]
  - CEREBRAL INFARCTION [None]
  - DISTURBANCE IN ATTENTION [None]
  - MOOD ALTERED [None]
  - PAIN [None]
  - FEAR [None]
